FAERS Safety Report 19814137 (Version 1)
Quarter: 2021Q3

REPORT INFORMATION
  Report Type: Spontaneous
  Country: DE (occurrence: DE)
  Receive Date: 20210910
  Receipt Date: 20210910
  Transmission Date: 20211014
  Serious: Yes (Hospitalization, Congenital Anomaly, Other)
  Sender: FDA-Public Use
  Company Number: DE-TEVA-2021-DE-1950365

PATIENT
  Age: 10 Month
  Sex: Male

DRUGS (5)
  1. OMEPRAZOL [Concomitant]
     Active Substance: OMEPRAZOLE
     Indication: PRODUCT USED FOR UNKNOWN INDICATION
     Dosage: UNIT DOSE : 20 MG , 20 [MG / D (IF REQUIRED)] / IF REQUIRED , ADDITIONAL INFO :  TRIMESTER: 1ST + 3R
     Route: 064
  2. BOOSTRIX [Concomitant]
     Active Substance: TETANUS TOXOID, REDUCED DIPHTHERIA TOXOID AND ACELLULAR PERTUSSIS VACCINE, ADSORBED ANTIGENS
     Indication: IMMUNISATION
     Dosage: ADDITIONAL INFO : 32.5. ? 32.5. GESTATIONAL WEEK
     Route: 064
     Dates: start: 20200820, end: 20200820
  3. FOLSAURE [Concomitant]
     Active Substance: FOLIC ACID
     Indication: PROPHYLAXIS OF NEURAL TUBE DEFECT
     Dosage: ADDITIONAL INFO : 0. ? 35.4. GESTATIONAL WEEK
     Route: 064
     Dates: start: 20200104, end: 20200909
  4. QUETIAPIN RETARD [Suspect]
     Active Substance: QUETIAPINE
     Indication: BORDERLINE PERSONALITY DISORDER
     Dosage: 300 [MG/D ]/ INITIAL 200MG DAILY, DOSAGE INCREASED TO 300MG DAILY , ADDITIONAL INFO : 0. ? 40.2. GES
     Route: 064
     Dates: start: 20200104, end: 20201012
  5. ESCITALOPRAM [Suspect]
     Active Substance: ESCITALOPRAM OXALATE
     Indication: DEPRESSION
     Dosage: 10 MILLIGRAM DAILY; ADDITIONAL INFO : 0. ? 29.3. GESTATIONAL WEEK
     Route: 064

REACTIONS (2)
  - Cleft lip and palate [Recovered/Resolved with Sequelae]
  - Foetal exposure during pregnancy [Unknown]
